FAERS Safety Report 7929774-X (Version None)
Quarter: 2011Q4

REPORT INFORMATION
  Report Type: 
  Country: None (occurrence: None)
  Receive Date: 20111121
  Receipt Date: 20111115
  Transmission Date: 20120403
  Serious: Yes (Other)
  Sender: FDA-Public Use
  Company Number: PHEH2011US009593

PATIENT
  Age: 17 Year
  Sex: Male
  Weight: 54.422 kg

DRUGS (2)
  1. PULMOZYME [Concomitant]
     Dosage: UNK
  2. TOBI [Suspect]
     Indication: CYSTIC FIBROSIS
     Dosage: 300 MG, BID FOR 28 DAYS
     Dates: start: 20110723

REACTIONS (1)
  - SOFT TISSUE INFECTION [None]
